FAERS Safety Report 8377096-8 (Version None)
Quarter: 2012Q2

REPORT INFORMATION
  Report Type: 
  Country: None (occurrence: None)
  Receive Date: 20120522
  Receipt Date: 20120507
  Transmission Date: 20120825
  Serious: Yes (Other)
  Sender: FDA-Public Use
  Company Number: US-ROCHE-1066762

PATIENT
  Sex: Female

DRUGS (2)
  1. ACTEMRA [Suspect]
     Dates: start: 20120430
  2. ACTEMRA [Suspect]
     Indication: RHEUMATOID ARTHRITIS
     Route: 042
     Dates: start: 20120321, end: 20120430

REACTIONS (6)
  - PRURITUS [None]
  - URTICARIA [None]
  - MALAISE [None]
  - PAIN [None]
  - PARAESTHESIA [None]
  - STOMACH MASS [None]
